FAERS Safety Report 7555648-2 (Version None)
Quarter: 2011Q2

REPORT INFORMATION
  Report Type: 
  Country: None (occurrence: None)
  Receive Date: 20110617
  Receipt Date: 20080613
  Transmission Date: 20111010
  Serious: Yes (Other)
  Sender: FDA-Public Use
  Company Number: PHHY2008CA10847

PATIENT
  Sex: Female

DRUGS (1)
  1. SANDOSTATIN LAR [Suspect]
     Indication: THYROID DISORDER
     Dosage: 30 MG, QMO
     Route: 030
     Dates: start: 20060720

REACTIONS (3)
  - ASTHENIA [None]
  - WEIGHT DECREASED [None]
  - MALAISE [None]
